FAERS Safety Report 13463453 (Version 1)
Quarter: 2017Q2

REPORT INFORMATION
  Report Type: Spontaneous
  Country: US (occurrence: US)
  Receive Date: 20170420
  Receipt Date: 20170420
  Transmission Date: 20170830
  Serious: Yes (Other)
  Sender: FDA-Public Use
  Company Number: US-AMGEN-USASP2017059241

PATIENT
  Age: 54 Year
  Sex: Female
  Weight: 56.69 kg

DRUGS (3)
  1. VITAMIN D [Concomitant]
     Active Substance: CHOLECALCIFEROL
  2. PROLIA [Suspect]
     Active Substance: DENOSUMAB
     Indication: PRODUCT USED FOR UNKNOWN INDICATION
     Dosage: UNK
     Route: 065
     Dates: start: 201703
  3. CALCIUM [Concomitant]
     Active Substance: CALCIUM

REACTIONS (11)
  - Abasia [Recovering/Resolving]
  - Loss of personal independence in daily activities [Unknown]
  - Musculoskeletal disorder [Unknown]
  - Decreased appetite [Unknown]
  - Weight decreased [Unknown]
  - Palpitations [Unknown]
  - Dyspnoea [Unknown]
  - Heart rate increased [Unknown]
  - Pain [Unknown]
  - Feeling abnormal [Unknown]
  - Arthralgia [Not Recovered/Not Resolved]

NARRATIVE: CASE EVENT DATE: 201704
